FAERS Safety Report 15366996 (Version 1)
Quarter: 2018Q3

REPORT INFORMATION
  Report Type: Spontaneous
  Country: US (occurrence: US)
  Receive Date: 20180903
  Receipt Date: 20180903
  Transmission Date: 20181010
  Serious: Yes (Disabling)
  Sender: FDA-Public Use
  Company Number: None

PATIENT
  Age: 53 Year
  Sex: Female
  Weight: 72.9 kg

DRUGS (5)
  1. CYTOMEL [Concomitant]
     Active Substance: LIOTHYRONINE SODIUM
  2. CLARITIN [Concomitant]
     Active Substance: LORATADINE
  3. LEVOTHYROXINE. [Concomitant]
     Active Substance: LEVOTHYROXINE
  4. FLONASE [Concomitant]
     Active Substance: FLUTICASONE PROPIONATE
  5. MOXIFLOXACIN GENERIC [Suspect]
     Active Substance: MOXIFLOXACIN

REACTIONS (2)
  - Neuropathy peripheral [None]
  - Feeling cold [None]

NARRATIVE: CASE EVENT DATE: 20151013
